FAERS Safety Report 4311189-7 (Version None)
Quarter: 2004Q1

REPORT INFORMATION
  Report Type: 
  Country: None (occurrence: None)
  Receive Date: 20040301
  Receipt Date: 20040120
  Transmission Date: 20041129
  Serious: No
  Sender: FDA-Public Use
  Company Number: WAES 0401USA01463

PATIENT
  Sex: Female

DRUGS (5)
  1. ZETIA [Suspect]
     Indication: BLOOD CHOLESTEROL INCREASED
     Dosage: 10 MG/ DAILY/ PO
     Route: 048
  2. ZETIA [Suspect]
     Indication: BLOOD CHOLESTEROL INCREASED
     Dosage: 20 MG/ DAILY/ PO
     Route: 048
  3. LEVOXYL [Concomitant]
  4. PRAVACHOL [Concomitant]
  5. HYDROCHLOROTHIAZIDE [Concomitant]

REACTIONS (5)
  - BLOOD CHOLESTEROL INCREASED [None]
  - MEDICATION ERROR [None]
  - MYALGIA [None]
  - NO ADVERSE EFFECT [None]
  - OVERDOSE [None]
